FAERS Safety Report 22354133 (Version 9)
Quarter: 2025Q1

REPORT INFORMATION
  Report Type: Spontaneous
  Country: US (occurrence: US)
  Receive Date: 20230523
  Receipt Date: 20250106
  Transmission Date: 20250409
  Serious: Yes (Hospitalization, Other)
  Sender: SANOFI AVENTIS
  Company Number: US-SA-SAC20230522000906

PATIENT
  Age: 68 Year
  Sex: Female

DRUGS (3)
  1. DUPIXENT [Suspect]
     Active Substance: DUPILUMAB
     Indication: Eczema nummular
     Route: 058
     Dates: start: 202211, end: 202211
  2. DUPIXENT [Suspect]
     Active Substance: DUPILUMAB
     Indication: Dermatitis atopic
     Dosage: 300 MG, QOW
     Route: 058
     Dates: start: 2022
  3. DUPIXENT [Suspect]
     Active Substance: DUPILUMAB
     Dosage: 300 MG, QOW
     Route: 058

REACTIONS (9)
  - Pneumonia [Unknown]
  - Seizure [Unknown]
  - Staphylococcal infection [Unknown]
  - Fatigue [Unknown]
  - Urinary tract infection [Unknown]
  - Illness [Unknown]
  - Gastrointestinal disorder [Unknown]
  - Product dose omission issue [Unknown]
  - Product dose omission in error [Unknown]
